FAERS Safety Report 11253246 (Version 1)
Quarter: 2015Q3

REPORT INFORMATION
  Report Type: Spontaneous
  Country: US (occurrence: US)
  Receive Date: 20150709
  Receipt Date: 20150709
  Transmission Date: 20151125
  Serious: No
  Sender: FDA-Public Use
  Company Number: US-TEVA-513320USA

PATIENT
  Age: 30 Year
  Sex: Female
  Weight: 49.94 kg

DRUGS (4)
  1. HYDROXYZINE HCG [Concomitant]
     Dosage: 25 MILLIGRAM DAILY;
  2. VENLAFAXINE [Suspect]
     Active Substance: VENLAFAXINE HYDROCHLORIDE
     Indication: DEPRESSION
     Dosage: 75 MILLIGRAM DAILY; DOSE AND FREQUENCY NOT PROVIDED
     Route: 065
     Dates: start: 20140925
  3. MELATONIN [Concomitant]
     Active Substance: MELATONIN
     Indication: INSOMNIA
     Dosage: 3 MILLIGRAM DAILY; AT NIGHTTIME
  4. BENADRYL [Concomitant]
     Active Substance: DIPHENHYDRAMINE HYDROCHLORIDE
     Indication: INSOMNIA
     Dosage: 25 MILLIGRAM DAILY; AT NIGHTTIME

REACTIONS (4)
  - Product substitution issue [Unknown]
  - Insomnia [Unknown]
  - Drug ineffective [Not Recovered/Not Resolved]
  - Depression [Unknown]

NARRATIVE: CASE EVENT DATE: 201409
